FAERS Safety Report 4535222-2 (Version None)
Quarter: 2004Q4

REPORT INFORMATION
  Report Type: 
  Country: None (occurrence: None)
  Receive Date: 20041214
  Receipt Date: 20041001
  Transmission Date: 20050328
  Serious: No
  Sender: FDA-Public Use
  Company Number: 2004238231US

PATIENT
  Age: 44 Year
  Sex: Female

DRUGS (2)
  1. BEXTRA [Suspect]
     Dosage: SEE IMAGE
  2. FLUOXETINE [Concomitant]

REACTIONS (2)
  - BREAST TENDERNESS [None]
  - DRUG INEFFECTIVE [None]
